FAERS Safety Report 12630294 (Version 1)
Quarter: 2016Q3

REPORT INFORMATION
  Report Type: Spontaneous
  Country: GB (occurrence: GB)
  Receive Date: 20160808
  Receipt Date: 20160808
  Transmission Date: 20161109
  Serious: Yes (Hospitalization, Other)
  Sender: FDA-Public Use
  Company Number: GB-SHENZHEN TECHDOW PHARMACEUTICAL CO. LTD-GB-2016TEC0000026

PATIENT
  Age: 28 Year
  Sex: Female

DRUGS (2)
  1. WARFARIN [Suspect]
     Active Substance: WARFARIN
     Indication: ANTICOAGULANT THERAPY
     Dosage: UNK
  2. HEPARIN SODIUM INJECTION USP, PRESERVATIVE FREE [Suspect]
     Active Substance: HEPARIN SODIUM
     Indication: ANTICOAGULANT THERAPY
     Dosage: UNK

REACTIONS (5)
  - Dyspnoea [Unknown]
  - Embolism [Recovering/Resolving]
  - Aortic stenosis [Unknown]
  - Chest discomfort [Unknown]
  - Pelvic haematoma obstetric [Recovered/Resolved]
